FAERS Safety Report 7903312-X (Version None)
Quarter: 2011Q4

REPORT INFORMATION
  Report Type: 
  Country: None (occurrence: None)
  Receive Date: 20111109
  Receipt Date: 20111031
  Transmission Date: 20120403
  Serious: Yes (Death, Life-Threatening, Hospitalization)
  Sender: FDA-Public Use
  Company Number: JP-AMGEN-JPNCT2011051837

PATIENT
  Age: 66 Year
  Sex: Male
  Weight: 80 kg

DRUGS (5)
  1. PANITUMUMAB [Suspect]
     Dosage: 6 MG/KG, Q2WK
     Route: 041
     Dates: start: 20110112, end: 20110420
  2. CANDESARTAN CILEXETIL [Concomitant]
     Indication: HYPERTENSION
     Dosage: UNK
     Route: 048
  3. PANITUMUMAB [Suspect]
     Indication: COLORECTAL CANCER
     Dosage: 6 MG/KG, Q2WK
     Route: 041
     Dates: start: 20101117, end: 20101215
  4. WARFARIN SODIUM [Concomitant]
     Indication: VENOUS THROMBOSIS
     Dosage: UNK
     Route: 048
  5. PANITUMUMAB [Suspect]
     Dosage: 6 MG/KG, Q2WK
     Route: 041
     Dates: start: 20110518, end: 20110713

REACTIONS (5)
  - HYPOMAGNESAEMIA [None]
  - DERMATITIS ACNEIFORM [None]
  - COLORECTAL CANCER [None]
  - HYPOCALCAEMIA [None]
  - FACE OEDEMA [None]
